FAERS Safety Report 9521807 (Version 2)
Quarter: 2013Q4

REPORT INFORMATION
  Report Type: Spontaneous
  Country: PL (occurrence: PL)
  Receive Date: 20130913
  Receipt Date: 20131015
  Transmission Date: 20140711
  Serious: Yes (Other)
  Sender: FDA-Public Use
  Company Number: PHHY2013PL099649

PATIENT
  Age: 74 Year
  Sex: Male

DRUGS (2)
  1. OCTREOTIDE [Suspect]
     Indication: CARCINOID TUMOUR
     Dosage: UNK UKN, UNK
  2. LANREOTIDE [Suspect]
     Indication: CARCINOID TUMOUR
     Dosage: UNK UKN, UNK

REACTIONS (14)
  - Metastases to heart [Unknown]
  - Pericardial effusion [Unknown]
  - Cardiac failure [Unknown]
  - Left ventricular dysfunction [Unknown]
  - Ejection fraction decreased [Unknown]
  - Diabetes mellitus [Unknown]
  - Renal failure chronic [Unknown]
  - Tricuspid valve stenosis [Unknown]
  - Blood pressure decreased [Unknown]
  - Anaemia [Unknown]
  - Hyperparathyroidism [Unknown]
  - Fatigue [Unknown]
  - Oedema peripheral [Unknown]
  - Dyspnoea [Unknown]
